FAERS Safety Report 24020620 (Version 1)
Quarter: 2024Q2

REPORT INFORMATION
  Report Type: Spontaneous
  Country: FR (occurrence: FR)
  Receive Date: 20240627
  Receipt Date: 20240627
  Transmission Date: 20240716
  Serious: Yes (Death, Other)
  Sender: FDA-Public Use
  Company Number: None

PATIENT
  Age: 74 Year
  Sex: Female

DRUGS (3)
  1. BETAMETHASONE DIPROPIONATE\BETAMETHASONE SODIUM PHOSPHATE [Suspect]
     Active Substance: BETAMETHASONE DIPROPIONATE\BETAMETHASONE SODIUM PHOSPHATE
     Indication: Joint injection
     Dosage: 1 ML / ARTICULATION
     Route: 014
     Dates: start: 20240521, end: 20240521
  2. IOPAMIRON [Suspect]
     Active Substance: IOPAMIDOL
     Indication: Arthroscopy
     Dosage: 6 ML, SINGLE
     Route: 014
     Dates: start: 20240521, end: 20240521
  3. LIDOCAINE [Suspect]
     Active Substance: LIDOCAINE
     Indication: Joint injection
     Dosage: 5 ML, SINGLE
     Route: 014
     Dates: start: 20240521, end: 20240521

REACTIONS (2)
  - Cardio-respiratory arrest [Fatal]
  - Anaphylactic shock [Fatal]

NARRATIVE: CASE EVENT DATE: 20240521
